FAERS Safety Report 11700589 (Version 2)
Quarter: 2015Q4

REPORT INFORMATION
  Report Type: Spontaneous
  Country: US (occurrence: US)
  Receive Date: 20151105
  Receipt Date: 20151125
  Transmission Date: 20160304
  Serious: Yes (Death, Hospitalization)
  Sender: FDA-Public Use
  Company Number: US-INCYTE CORPORATION-2015IN005615

PATIENT
  Age: 81 Year
  Sex: Male

DRUGS (11)
  1. AVELOX [Concomitant]
     Active Substance: MOXIFLOXACIN HYDROCHLORIDE
  2. CARVEDILOL. [Concomitant]
     Active Substance: CARVEDILOL
  3. PREDNISONE. [Concomitant]
     Active Substance: PREDNISONE
  4. JAKAFI [Suspect]
     Active Substance: RUXOLITINIB
     Indication: MYELOFIBROSIS
     Dosage: 10 MG, BID
     Route: 048
  5. INDOMETHACIN                       /00003801/ [Concomitant]
     Active Substance: INDOMETHACIN
  6. ASPIRIN. [Concomitant]
     Active Substance: ASPIRIN
  7. ANAGRELIDE [Concomitant]
     Active Substance: ANAGRELIDE
  8. COLCRYS [Concomitant]
     Active Substance: COLCHICINE
  9. MULTIVITAMINS [Concomitant]
     Active Substance: VITAMINS
  10. BUMETANIDE. [Concomitant]
     Active Substance: BUMETANIDE
  11. PRILOSEC [Concomitant]
     Active Substance: OMEPRAZOLE MAGNESIUM

REACTIONS (2)
  - Death [Fatal]
  - Dyspnoea [Unknown]

NARRATIVE: CASE EVENT DATE: 20151106
